FAERS Safety Report 9319541 (Version 1)
Quarter: 2013Q2

REPORT INFORMATION
  Report Type: Report from Study
  Country: IL (occurrence: IL)
  Receive Date: 20130530
  Receipt Date: 20130530
  Transmission Date: 20140414
  Serious: Yes (Hospitalization)
  Sender: FDA-Public Use
  Company Number: IL-SHIRE-SPV1-2011-00153

PATIENT
  Age: 34 Year
  Sex: Female
  Weight: 78.5 kg

DRUGS (3)
  1. ICATIBANT [Suspect]
     Indication: HEREDITARY ANGIOEDEMA
     Dosage: 30 MG, AS REQ^D
     Route: 058
     Dates: start: 20101114
  2. ICATIBANT [Suspect]
     Dosage: 30 MG, AS REQ^D
     Route: 058
     Dates: start: 20110109
  3. ICATIBANT [Suspect]
     Dosage: 30 MG, AS REQ^D
     Route: 058
     Dates: start: 20110117

REACTIONS (2)
  - Hereditary angioedema [Recovered/Resolved]
  - Exposure during pregnancy [Not Recovered/Not Resolved]
